FAERS Safety Report 23768704 (Version 2)
Quarter: 2024Q3

REPORT INFORMATION
  Report Type: Spontaneous
  Country: DE (occurrence: DE)
  Receive Date: 20240422
  Receipt Date: 20240701
  Transmission Date: 20241017
  Serious: Yes (Other)
  Sender: MYLAN
  Company Number: DE-MYLANLABS-2024M1035729

PATIENT
  Age: 53 Year
  Sex: Male
  Weight: 67 kg

DRUGS (7)
  1. CLOZAPINE [Suspect]
     Active Substance: CLOZAPINE
     Indication: Product used for unknown indication
     Dosage: UNK
     Route: 065
  2. CLOZAPINE [Suspect]
     Active Substance: CLOZAPINE
     Indication: Schizophrenia
     Dosage: 12.5-12.5-0-50
     Route: 065
  3. TRAMADOL [Suspect]
     Active Substance: TRAMADOL\TRAMADOL HYDROCHLORIDE
     Indication: Product used for unknown indication
     Dosage: 1-0-1-0
     Route: 065
  4. CLOZAPINE [Concomitant]
     Active Substance: CLOZAPINE
     Dosage: 0.5-0.5-0-2
     Route: 065
  5. ARIPIPRAZOL RATIOPHARM [Concomitant]
     Indication: Schizophrenia
     Dosage: 1.5
     Route: 065
  6. METAMIZOLE [Concomitant]
     Active Substance: METAMIZOLE
     Dosage: 1-1-1-1
     Route: 065
  7. ARIPIPRAZOL RATIOPHARM [Concomitant]
     Indication: Schizophrenia
     Dosage: 1
     Route: 065

REACTIONS (23)
  - Haemorrhage [Unknown]
  - Pain in extremity [Unknown]
  - Pelvic mass [Unknown]
  - Pulmonary mass [Unknown]
  - Soft tissue inflammation [Unknown]
  - Pleural effusion [Unknown]
  - Arthropathy [Unknown]
  - Pulmonary mass [Unknown]
  - Granuloma [Unknown]
  - Dizziness [Unknown]
  - Cough [Unknown]
  - Anaemia [Unknown]
  - Haematocrit decreased [Unknown]
  - Mean cell volume decreased [Unknown]
  - Mean cell haemoglobin decreased [Unknown]
  - Immature granulocyte count increased [Unknown]
  - Neutrophil count increased [Unknown]
  - Blood creatinine decreased [Unknown]
  - Blood iron decreased [Unknown]
  - Alpha 1 globulin increased [Unknown]
  - Alpha 2 globulin increased [Unknown]
  - Immunoglobulins decreased [Unknown]
  - C-reactive protein increased [Unknown]

NARRATIVE: CASE EVENT DATE: 20230101
